FAERS Safety Report 4416552-1 (Version None)
Quarter: 2004Q3

REPORT INFORMATION
  Report Type: 
  Country: None (occurrence: None)
  Receive Date: 20040802
  Receipt Date: 20040714
  Transmission Date: 20050211
  Serious: Yes (Hospitalization)
  Sender: FDA-Public Use
  Company Number: B0339413A

PATIENT
  Age: 57 Year
  Sex: Female

DRUGS (6)
  1. COMMIT [Suspect]
     Indication: SMOKING CESSATION THERAPY
     Dosage: 4 MG/TRANSBUCCAL
     Route: 002
     Dates: start: 20040712, end: 20040712
  2. DICLOFENAC SODIUM [Suspect]
  3. ROFECOXIB [Suspect]
  4. RALOXIFENE HCL [Concomitant]
  5. SIMVASTATIN [Concomitant]
  6. MOCLOBEMIDE [Concomitant]

REACTIONS (1)
  - ABDOMINAL PAIN UPPER [None]
